FAERS Safety Report 6739076-5 (Version None)
Quarter: 2010Q2

REPORT INFORMATION
  Report Type: 
  Country: None (occurrence: None)
  Receive Date: 20100525
  Receipt Date: 20100518
  Transmission Date: 20101027
  Serious: Yes (Other)
  Sender: FDA-Public Use
  Company Number: US-BIOGENIDEC-2010BI014616

PATIENT
  Age: 35 Year
  Sex: Male
  Weight: 52 kg

DRUGS (1)
  1. TYSABRI [Suspect]
     Indication: MULTIPLE SCLEROSIS
     Route: 042
     Dates: start: 20090728

REACTIONS (3)
  - DRY MOUTH [None]
  - PARTIAL SEIZURES [None]
  - STRESS [None]
